FAERS Safety Report 20717632 (Version 1)
Quarter: 2022Q2

REPORT INFORMATION
  Report Type: Spontaneous
  Country: JP (occurrence: JP)
  Receive Date: 20220417
  Receipt Date: 20220417
  Transmission Date: 20220721
  Serious: Yes (Other)
  Sender: FDA-Public Use
  Company Number: JP-MTPC-MTPC2022-0005138

PATIENT
  Age: 6 Decade
  Sex: Female

DRUGS (20)
  1. REMICADE [Suspect]
     Active Substance: INFLIXIMAB
     Indication: Crohn^s disease
     Dosage: UNK
     Route: 042
     Dates: start: 201712
  2. REMICADE [Suspect]
     Active Substance: INFLIXIMAB
     Dosage: 10 MILLIGRAM/KILOGRAM, QD
     Route: 042
     Dates: start: 201804
  3. REMICADE [Suspect]
     Active Substance: INFLIXIMAB
     Dosage: 10 MILLIGRAM/KILOGRAM, QD
     Route: 042
  4. REMICADE [Suspect]
     Active Substance: INFLIXIMAB
     Dosage: 10 MILLIGRAM/KILOGRAM, QD
     Route: 042
  5. STELARA [Suspect]
     Active Substance: USTEKINUMAB
     Indication: Crohn^s disease
     Dosage: UNK
     Route: 058
     Dates: start: 201708, end: 201711
  6. STELARA [Suspect]
     Active Substance: USTEKINUMAB
     Dosage: UNK
     Route: 058
     Dates: start: 201710, end: 201711
  7. POTASSIUM ASPARTATE [Concomitant]
     Active Substance: POTASSIUM ASPARTATE
     Dosage: 1 DOSAGE FORM, TID
     Route: 048
     Dates: start: 2016, end: 201805
  8. POTASSIUM ASPARTATE [Concomitant]
     Active Substance: POTASSIUM ASPARTATE
     Dosage: 1 DOSAGE FORM, BID
     Route: 048
     Dates: start: 202112
  9. PENTASA [Concomitant]
     Active Substance: MESALAMINE
     Dosage: 2 GRAM, QD
     Route: 048
     Dates: start: 201706
  10. PENTASA [Concomitant]
     Active Substance: MESALAMINE
     Dosage: 1 GRAM, BID
     Route: 048
     Dates: start: 202112
  11. MIYA-BM [Concomitant]
     Active Substance: CLOSTRIDIUM BUTYRICUM SPORES STRAIN M-55
     Dosage: 3 DOSAGE FORM, QD
     Route: 048
     Dates: start: 201706
  12. BIOFERMIN [BACILLUS SUBTILIS;ENTEROCOCCUS FAECALIS;LACTOBACILLUS ACIDO [Concomitant]
     Dosage: 3 GRAM, QD
     Route: 065
     Dates: start: 201706
  13. BILASTINE [Concomitant]
     Active Substance: BILASTINE
     Dosage: UNK
     Route: 065
     Dates: start: 202002
  14. CLARITHROMYCIN [Concomitant]
     Active Substance: CLARITHROMYCIN
     Dosage: UNK
     Route: 065
     Dates: start: 202002
  15. ADALIMUMAB [Concomitant]
     Active Substance: ADALIMUMAB
     Dosage: UNK
     Route: 065
  16. IMURAN [Concomitant]
     Active Substance: AZATHIOPRINE
     Dosage: 50 MILLIGRAM, QD
     Route: 065
  17. IMURAN [Concomitant]
     Active Substance: AZATHIOPRINE
     Dosage: 25 MILLIGRAM, QD
     Route: 065
     Dates: start: 201803, end: 202103
  18. IMURAN [Concomitant]
     Active Substance: AZATHIOPRINE
     Dosage: 25 MILLIGRAM, QD
     Route: 065
     Dates: start: 202110
  19. SULFAMETHOXAZOLE\TRIMETHOPRIM [Concomitant]
     Active Substance: SULFAMETHOXAZOLE\TRIMETHOPRIM
     Route: 065
  20. ZINC ACETATE [Concomitant]
     Active Substance: ZINC ACETATE
     Dosage: 25 MILLIGRAM, QD
     Route: 065
     Dates: start: 202110

REACTIONS (3)
  - Atypical mycobacterial infection [Unknown]
  - Psoriasis [Not Recovered/Not Resolved]
  - Therapeutic product effect incomplete [Unknown]

NARRATIVE: CASE EVENT DATE: 20211201
